FAERS Safety Report 4662798-7 (Version None)
Quarter: 2005Q2

REPORT INFORMATION
  Report Type: 
  Country: None (occurrence: None)
  Receive Date: 20050512
  Receipt Date: 20050420
  Transmission Date: 20051028
  Serious: Yes (Hospitalization)
  Sender: FDA-Public Use
  Company Number: JP_050406435

PATIENT
  Age: 58 Year
  Sex: Female

DRUGS (2)
  1. ZYPREXA [Suspect]
     Indication: PSYCHOTIC DISORDER
     Dosage: 20 MG DAY
  2. PAROXETINE [Concomitant]

REACTIONS (21)
  - ABNORMAL BEHAVIOUR [None]
  - AGITATION [None]
  - AKINESIA [None]
  - AMNESIA [None]
  - ANXIETY [None]
  - COMPULSIONS [None]
  - DECREASED APPETITE [None]
  - DISORIENTATION [None]
  - EUPHORIC MOOD [None]
  - EXCITABILITY [None]
  - FALL [None]
  - FEELING ABNORMAL [None]
  - FEELING GUILTY [None]
  - HUMERUS FRACTURE [None]
  - INSOMNIA [None]
  - MUTISM [None]
  - PSYCHOTIC DISORDER [None]
  - REFUSAL OF TREATMENT BY PATIENT [None]
  - RESTLESSNESS [None]
  - SUICIDE ATTEMPT [None]
  - THINKING ABNORMAL [None]
